FAERS Safety Report 21081590 (Version 3)
Quarter: 2022Q3

REPORT INFORMATION
  Report Type: Spontaneous
  Country: GB (occurrence: GB)
  Receive Date: 20220714
  Receipt Date: 20220803
  Transmission Date: 20221027
  Serious: Yes (Other)
  Sender: FDA-Public Use
  Company Number: GB-MHRA-MED-202207081607054620-TNZKY

PATIENT
  Age: 47 Year
  Sex: Female

DRUGS (2)
  1. DOXYCYCLINE [Interacting]
     Active Substance: DOXYCYCLINE
     Indication: Respiratory tract infection
     Dosage: 100 MILLIGRAM, BID (TWICE A DAY)
     Route: 065
     Dates: start: 20220625, end: 20220629
  2. TEGRETOL [Interacting]
     Active Substance: CARBAMAZEPINE
     Indication: Trigeminal neuralgia
     Dosage: 400 MILLIGRAM, BID
     Route: 065

REACTIONS (3)
  - Trigeminal neuralgia [Unknown]
  - Condition aggravated [Unknown]
  - Drug interaction [Not Recovered/Not Resolved]

NARRATIVE: CASE EVENT DATE: 20220629
